FAERS Safety Report 4836255-9 (Version None)
Quarter: 2005Q4

REPORT INFORMATION
  Report Type: 
  Country: None (occurrence: None)
  Receive Date: 20051121
  Receipt Date: 20051121
  Transmission Date: 20060501
  Serious: Yes (Life-Threatening, Hospitalization)
  Sender: FDA-Public Use
  Company Number: None

PATIENT
  Age: 35 Year
  Sex: Female
  Weight: 83.9154 kg

DRUGS (1)
  1. YASMIN [Suspect]
     Indication: MENORRHAGIA
     Dosage: 1 PILL A DAY     1 QD  PO
     Route: 048
     Dates: start: 20050201, end: 20051113

REACTIONS (2)
  - PULMONARY EMBOLISM [None]
  - SARCOIDOSIS [None]
